FAERS Safety Report 23331779 (Version 3)
Quarter: 2024Q3

REPORT INFORMATION
  Report Type: Spontaneous
  Country: JP (occurrence: JP)
  Receive Date: 20231222
  Receipt Date: 20240920
  Transmission Date: 20241017
  Serious: Yes (Death, Life-Threatening, Other)
  Sender: GENMAB
  Company Number: JP-GENMAB-2023-02431

PATIENT
  Age: 49 Year
  Sex: Female

DRUGS (3)
  1. EPKINLY [Suspect]
     Active Substance: EPCORITAMAB-BYSP
     Indication: Diffuse large B-cell lymphoma
     Dosage: UNK, 1ST ADMINISTRATION IN CYCLE 1
     Route: 058
     Dates: start: 20231205, end: 20231205
  2. EPKINLY [Suspect]
     Active Substance: EPCORITAMAB-BYSP
     Dosage: UNK, 2ND ADMINISTRATION IN CYCLE 1
     Route: 058
     Dates: start: 20231212, end: 20231212
  3. EPKINLY [Suspect]
     Active Substance: EPCORITAMAB-BYSP
     Dosage: 48 MILLIGRAM, 3RD ADMINISTRATION IN CYCLE 1
     Route: 058
     Dates: start: 20231219, end: 20231219

REACTIONS (5)
  - Wheezing [Fatal]
  - Dyspnoea [Fatal]
  - Hypoaesthesia [Fatal]
  - Diffuse large B-cell lymphoma [Fatal]
  - Cytokine release syndrome [Not Recovered/Not Resolved]

NARRATIVE: CASE EVENT DATE: 20231201
